FAERS Safety Report 6168461-8 (Version None)
Quarter: 2009Q2

REPORT INFORMATION
  Report Type: 
  Country: None (occurrence: None)
  Receive Date: 20090427
  Receipt Date: 20090417
  Transmission Date: 20091009
  Serious: Yes (Hospitalization)
  Sender: FDA-Public Use
  Company Number: A0764962A

PATIENT
  Age: 56 Year
  Sex: Male
  Weight: 105.5 kg

DRUGS (11)
  1. AVANDIA [Suspect]
     Dosage: 2MG TWICE PER DAY
     Route: 048
     Dates: end: 20060101
  2. LIPITOR [Concomitant]
  3. ZOCOR [Concomitant]
  4. BUPROPION HYDROCHLORIDE [Concomitant]
  5. TOPROL-XL [Concomitant]
  6. INDAPAMIDE [Concomitant]
  7. LANTUS [Concomitant]
  8. GLUCOPHAGE [Concomitant]
  9. TRICOR [Concomitant]
  10. LORTAB [Concomitant]
  11. PAXIL [Concomitant]

REACTIONS (2)
  - HEART INJURY [None]
  - MYOCARDIAL INFARCTION [None]
